FAERS Safety Report 24396889 (Version 7)
Quarter: 2025Q1

REPORT INFORMATION
  Report Type: Spontaneous
  Country: US (occurrence: US)
  Receive Date: 20241004
  Receipt Date: 20250220
  Transmission Date: 20250409
  Serious: No
  Sender: PFIZER
  Company Number: US-PFIZER INC-202400268100

PATIENT
  Age: 20 Year
  Sex: Female
  Weight: 70.31 kg

DRUGS (2)
  1. GENOTROPIN [Suspect]
     Active Substance: SOMATROPIN
     Indication: Hormone replacement therapy
     Dosage: 0.8 MG, DAILY
  2. SYNTHROID [Concomitant]
     Active Substance: LEVOTHYROXINE SODIUM
     Indication: Hypothyroidism
     Dosage: 75 UG, DAILY

REACTIONS (3)
  - Drug dose omission by device [Unknown]
  - Device occlusion [Unknown]
  - Device physical property issue [Unknown]
